FAERS Safety Report 6393613-1 (Version None)
Quarter: 2009Q4

REPORT INFORMATION
  Report Type: 
  Country: None (occurrence: None)
  Receive Date: 20091008
  Receipt Date: 20090928
  Transmission Date: 20100525
  Serious: Yes (Hospitalization)
  Sender: FDA-Public Use
  Company Number: JP-PFIZER INC-2009270842

PATIENT

DRUGS (1)
  1. ALDACTONE [Suspect]
     Indication: HYPOKALAEMIA
     Dosage: 25 MG, 3X/DAY
     Route: 048
     Dates: start: 20000101

REACTIONS (6)
  - BLOOD ALDOSTERONE INCREASED [None]
  - BLOOD CORTISOL INCREASED [None]
  - DECREASED APPETITE [None]
  - HEADACHE [None]
  - NAUSEA [None]
  - RENIN INCREASED [None]
